FAERS Safety Report 6074251-7 (Version None)
Quarter: 2009Q1

REPORT INFORMATION
  Report Type: 
  Country: None (occurrence: None)
  Receive Date: 20090211
  Receipt Date: 20090203
  Transmission Date: 20090719
  Serious: Yes (Death, Other)
  Sender: FDA-Public Use
  Company Number: PHHY2009JP01338

PATIENT
  Sex: Male
  Weight: 41 kg

DRUGS (10)
  1. DIOVAN [Suspect]
     Indication: HYPERTENSION
     Dosage: 80 MG, BID
     Route: 048
     Dates: start: 20081021, end: 20081217
  2. NATRIX [Concomitant]
     Dosage: 1 MG
     Route: 048
     Dates: start: 20080925, end: 20081217
  3. GREOSIN [Concomitant]
     Dosage: 7.5 MG
     Route: 048
     Dates: start: 20080925, end: 20081217
  4. ASPIRIN [Concomitant]
     Dosage: 100 MG
     Route: 048
     Dates: start: 20070529, end: 20081217
  5. BUP-4 [Concomitant]
     Dosage: 10 MG
     Route: 048
     Dates: start: 20070529, end: 20081217
  6. MUCOSTA [Concomitant]
     Dosage: 3 DF
     Route: 048
     Dates: start: 20070529, end: 20081217
  7. PROTECADIN [Concomitant]
     Dosage: 20 MG
     Route: 048
     Dates: start: 20070529, end: 20081217
  8. PURSENNID                               /SCH/ [Concomitant]
     Dosage: 2 DF
     Route: 048
     Dates: start: 20070529, end: 20081217
  9. PANTOSIN [Concomitant]
     Dosage: 3 G
     Route: 048
     Dates: start: 20070529, end: 20081217
  10. MAGNESIUM OXIDE [Concomitant]
     Dosage: 0.9 G
     Route: 048
     Dates: start: 20070529, end: 20081217

REACTIONS (6)
  - AORTIC ANEURYSM RUPTURE [None]
  - BLOOD PRESSURE DIASTOLIC DECREASED [None]
  - BLOOD PRESSURE INADEQUATELY CONTROLLED [None]
  - BLOOD PRESSURE INCREASED [None]
  - CARDIO-RESPIRATORY ARREST [None]
  - CHEST PAIN [None]
